FAERS Safety Report 6848575-7 (Version None)
Quarter: 2010Q3

REPORT INFORMATION
  Report Type: 
  Country: None (occurrence: None)
  Receive Date: 20100716
  Receipt Date: 20100709
  Transmission Date: 20110219
  Serious: Yes (Hospitalization)
  Sender: FDA-Public Use
  Company Number: US-BRISTOL-MYERS SQUIBB COMPANY-14921555

PATIENT
  Age: 39 Year
  Sex: Female
  Weight: 68 kg

DRUGS (22)
  1. ABILIFY [Suspect]
     Dosage: 5 MG 1/2Q
  2. LAMICTAL [Suspect]
     Dosage: 25MG BID (1X1WK,BIDX2WK)
  3. LEXAPRO [Suspect]
     Dosage: (30X2)10MG ORAL
     Route: 048
  4. XANAX [Suspect]
  5. IMDUR [Concomitant]
  6. NEXIUM [Concomitant]
  7. POTASSIUM CHLORIDE [Concomitant]
  8. WELLBUTRIN XL [Concomitant]
     Dosage: 1DF=300 UNITS NOS
  9. LISINOPRIL [Concomitant]
  10. METOPROLOL [Concomitant]
  11. REQUIP [Concomitant]
  12. LYRICA [Concomitant]
  13. EFFEXOR XR [Concomitant]
  14. PROZAC [Concomitant]
  15. PAXIL CR [Concomitant]
  16. GLUCOPHAGE [Concomitant]
  17. ACTOS [Concomitant]
  18. AMARYL [Concomitant]
  19. LOPRESSOR [Concomitant]
  20. NORVASC [Concomitant]
  21. ASPIRIN [Concomitant]
  22. MULTI-VITAMIN [Concomitant]

REACTIONS (3)
  - ADVERSE DRUG REACTION [None]
  - HEPATITIS [None]
  - PNEUMONIA [None]
